FAERS Safety Report 17913184 (Version 1)
Quarter: 2020Q2

REPORT INFORMATION
  Report Type: Spontaneous
  Country: AR (occurrence: AR)
  Receive Date: 20200618
  Receipt Date: 20200618
  Transmission Date: 20200714
  Serious: Yes (Other)
  Sender: FDA-Public Use
  Company Number: AR-PFIZER INC-2020218061

PATIENT
  Age: 71 Year
  Sex: Female

DRUGS (1)
  1. XELJANZ XR [Suspect]
     Active Substance: TOFACITINIB CITRATE
     Indication: RHEUMATOID ARTHRITIS
     Dosage: 11 MG, 1X/DAY
     Dates: start: 20190417

REACTIONS (9)
  - Musculoskeletal stiffness [Unknown]
  - Eye infection fungal [Unknown]
  - Arthralgia [Unknown]
  - Corneal disorder [Unknown]
  - Asthenopia [Unknown]
  - Eye ulcer [Unknown]
  - Dry eye [Unknown]
  - Gait disturbance [Unknown]
  - Eyelid margin crusting [Unknown]

NARRATIVE: CASE EVENT DATE: 2020
